FAERS Safety Report 5944181-7 (Version None)
Quarter: 2008Q4

REPORT INFORMATION
  Report Type: 
  Country: None (occurrence: None)
  Receive Date: 20081021
  Receipt Date: 20080111
  Transmission Date: 20090506
  Serious: Yes (Other)
  Sender: FDA-Public Use
  Company Number: HQWYE253116JUN06

PATIENT
  Age: 47 Year
  Sex: Female

DRUGS (8)
  1. PREMARIN [Suspect]
  2. ACTIVELLA [Suspect]
  3. ESTRATAB (ESTROGENS ESTRERIFIED, TABLET) [Suspect]
  4. ESTRATEST [Suspect]
  5. OGEN [Suspect]
  6. PREFEST [Suspect]
  7. PROMETRIUM [Suspect]
  8. PROVERA [Suspect]

REACTIONS (1)
  - BREAST CANCER IN SITU [None]
